FAERS Safety Report 16038913 (Version 1)
Quarter: 2019Q1

REPORT INFORMATION
  Report Type: Spontaneous
  Country: US (occurrence: US)
  Receive Date: 20190306
  Receipt Date: 20190306
  Transmission Date: 20190418
  Serious: Yes (Other)
  Sender: FDA-Public Use
  Company Number: PHEH2019US009443

PATIENT
  Sex: Male

DRUGS (1)
  1. GLEEVEC [Suspect]
     Active Substance: IMATINIB MESYLATE
     Indication: CHRONIC MYELOID LEUKAEMIA
     Dosage: 01 DF, QD
     Route: 048
     Dates: start: 200203, end: 20100705

REACTIONS (9)
  - Leukopenia [Unknown]
  - Gastrointestinal haemorrhage [Unknown]
  - Thrombocytopenia [Unknown]
  - Hypophosphataemia [Unknown]
  - Diarrhoea [Unknown]
  - Hiatus hernia [Unknown]
  - Oedema peripheral [Unknown]
  - Gout [Unknown]
  - Anaemia [Unknown]
